FAERS Safety Report 8896466 (Version 1)
Quarter: 2012Q4

REPORT INFORMATION
  Report Type: Spontaneous
  Country: US (occurrence: None)
  Receive Date: 20121107
  Receipt Date: 20121107
  Transmission Date: 20130627
  Serious: Yes (Hospitalization)
  Sender: FDA-Public Use
  Company Number: None

PATIENT
  Age: 59 Year
  Sex: Female
  Weight: 95.26 kg

DRUGS (2)
  1. DABIGATRAN [Suspect]
     Indication: ANTICOAGULANT THERAPY
     Route: 048
  2. DABIGATRAN [Suspect]
     Indication: AORTIC VALVE REPLACEMENT
     Route: 048

REACTIONS (3)
  - Aortic valve stenosis [None]
  - Drug ineffective [None]
  - Cardiac valve replacement complication [None]
